FAERS Safety Report 16916973 (Version 9)
Quarter: 2025Q3

REPORT INFORMATION
  Report Type: Report from Study
  Country: US (occurrence: US)
  Receive Date: 20191015
  Receipt Date: 20250905
  Transmission Date: 20251021
  Serious: Yes (Hospitalization, Other)
  Sender: TAKEDA
  Company Number: US-TAKEDA-2019TUS056439

PATIENT
  Age: 19 Year
  Sex: Male

DRUGS (15)
  1. PONATINIB [Suspect]
     Active Substance: PONATINIB
     Indication: Chronic myeloid leukaemia
     Dosage: 45 MILLIGRAM, QD
     Dates: start: 201904
  2. PONATINIB [Suspect]
     Active Substance: PONATINIB
     Dosage: 15 MILLIGRAM, QD
  3. PONATINIB [Suspect]
     Active Substance: PONATINIB
  4. PONATINIB [Suspect]
     Active Substance: PONATINIB
     Dosage: 30 MILLIGRAM, QD
  5. PONATINIB [Suspect]
     Active Substance: PONATINIB
     Dosage: 15 MILLIGRAM, QD
  6. PONATINIB [Suspect]
     Active Substance: PONATINIB
     Dosage: 15 MILLIGRAM, QD
  7. PONATINIB [Suspect]
     Active Substance: PONATINIB
     Dosage: 15 MILLIGRAM, QD
  8. GABAPENTIN [Concomitant]
     Active Substance: GABAPENTIN
  9. OXYCODONE HYDROCHLORIDE [Concomitant]
     Active Substance: OXYCODONE HYDROCHLORIDE
  10. POSACONAZOLE [Concomitant]
     Active Substance: POSACONAZOLE
  11. MELATONIN [Concomitant]
     Active Substance: MELATONIN
  12. FAMOTIDINE [Concomitant]
     Active Substance: FAMOTIDINE
  13. CYPROHEPTADINE HYDROCHLORIDE [Concomitant]
     Active Substance: CYPROHEPTADINE HYDROCHLORIDE
  14. FLUOXETINE HYDROCHLORIDE [Concomitant]
     Active Substance: FLUOXETINE HYDROCHLORIDE
  15. PREGABALIN [Concomitant]
     Active Substance: PREGABALIN

REACTIONS (8)
  - Decreased immune responsiveness [Unknown]
  - Blast cell crisis [Unknown]
  - Neuropathy peripheral [Unknown]
  - Pneumonia [Recovering/Resolving]
  - Drug intolerance [Unknown]
  - Product dose omission issue [Unknown]
  - Off label use [Unknown]
  - Neuralgia [Unknown]

NARRATIVE: CASE EVENT DATE: 20211204
